FAERS Safety Report 15785951 (Version 4)
Quarter: 2019Q1

REPORT INFORMATION
  Report Type: Spontaneous
  Country: US (occurrence: US)
  Receive Date: 20190103
  Receipt Date: 20190320
  Transmission Date: 20190417
  Serious: No
  Sender: FDA-Public Use
  Company Number: US-SA-2018SA395876

PATIENT
  Age: 95 Year
  Sex: Female

DRUGS (1)
  1. LANTUS SOLOSTAR [Suspect]
     Active Substance: INSULIN GLARGINE
     Indication: DIABETES MELLITUS
     Dosage: 10 U, HS
     Route: 065
     Dates: start: 20181224

REACTIONS (7)
  - Body temperature increased [Unknown]
  - Blood glucose fluctuation [Unknown]
  - Malaise [Unknown]
  - Product dose omission [Unknown]
  - Device issue [Unknown]
  - Hyperhidrosis [Unknown]
  - Blood glucose decreased [Unknown]
